FAERS Safety Report 6599453-2 (Version None)
Quarter: 2010Q1

REPORT INFORMATION
  Report Type: 
  Country: None (occurrence: None)
  Receive Date: 20100224
  Receipt Date: 20100215
  Transmission Date: 20100710
  Serious: Yes (Other)
  Sender: FDA-Public Use
  Company Number: NO-WATSON-2010-02053

PATIENT
  Sex: Female

DRUGS (3)
  1. TOPIRAMATE [Suspect]
     Indication: DRUG USE FOR UNKNOWN INDICATION
     Dosage: UNK
     Route: 065
  2. LEVETIRACETAM [Suspect]
     Indication: DRUG USE FOR UNKNOWN INDICATION
     Dosage: UNK
     Route: 065
  3. VALPROATE BISMUTH [Suspect]
     Dosage: UNK
     Route: 065

REACTIONS (1)
  - CONVULSION [None]
